FAERS Safety Report 12733438 (Version 2)
Quarter: 2016Q4

REPORT INFORMATION
  Report Type: Spontaneous
  Country: US (occurrence: US)
  Receive Date: 20160912
  Receipt Date: 20161104
  Transmission Date: 20170207
  Serious: Yes (Death, Hospitalization)
  Sender: FDA-Public Use
  Company Number: US-JNJFOC-20160802400

PATIENT
  Age: 78 Year
  Sex: Male

DRUGS (2)
  1. XARELTO [Suspect]
     Active Substance: RIVAROXABAN
     Indication: DEEP VEIN THROMBOSIS
     Dosage: 15MG AND 20MG
     Route: 048
     Dates: start: 20150427, end: 201507
  2. XARELTO [Suspect]
     Active Substance: RIVAROXABAN
     Indication: THROMBOSIS
     Dosage: 15MG AND 20MG
     Route: 048
     Dates: start: 20150427, end: 201507

REACTIONS (1)
  - Rectal haemorrhage [Fatal]

NARRATIVE: CASE EVENT DATE: 201507
